FAERS Safety Report 7478781-2 (Version None)
Quarter: 2011Q2

REPORT INFORMATION
  Report Type: 
  Country: None (occurrence: None)
  Receive Date: 20110513
  Receipt Date: 20110506
  Transmission Date: 20111010
  Serious: Yes (Other)
  Sender: FDA-Public Use
  Company Number: US-JNJFOC-20110504318

PATIENT
  Sex: Female

DRUGS (3)
  1. OTHER THERAPEUTIC PRODUCT [Concomitant]
     Indication: HYPOTHYROIDISM
     Route: 048
  2. LEVAQUIN [Suspect]
     Indication: SINUSITIS
     Route: 048
  3. LEVAQUIN [Suspect]
     Indication: EAR INFECTION
     Route: 048

REACTIONS (6)
  - TINNITUS [None]
  - NIGHTMARE [None]
  - ANXIETY [None]
  - HALLUCINATION, VISUAL [None]
  - NERVOUSNESS [None]
  - FEAR OF DEATH [None]
